FAERS Safety Report 13395771 (Version 4)
Quarter: 2017Q2

REPORT INFORMATION
  Report Type: Report from Study
  Country: FR (occurrence: FR)
  Receive Date: 20170403
  Receipt Date: 20170622
  Transmission Date: 20170830
  Serious: Yes (Hospitalization, Other)
  Sender: FDA-Public Use
  Company Number: PHHY2017FR044359

PATIENT
  Age: 39 Year
  Sex: Male
  Weight: 71 kg

DRUGS (5)
  1. METHOTREXATE. [Suspect]
     Active Substance: METHOTREXATE
     Dosage: 15 MG, QW
     Route: 048
     Dates: start: 20161202
  2. COSENTYX [Suspect]
     Active Substance: SECUKINUMAB
     Indication: PSORIASIS
     Dosage: 300 MG, QW
     Route: 058
     Dates: start: 20160826
  3. METHOTREXATE. [Suspect]
     Active Substance: METHOTREXATE
     Indication: PSORIASIS
     Dosage: 10 MG, QW
     Route: 048
     Dates: start: 201510, end: 20160826
  4. METHOTREXATE. [Suspect]
     Active Substance: METHOTREXATE
     Dosage: 20 MG, QW
     Route: 048
     Dates: start: 20160826, end: 20161202
  5. REMICADE [Suspect]
     Active Substance: INFLIXIMAB
     Indication: PSORIASIS
     Dosage: 700 MG, EVERY 6 WEEKS
     Route: 042
     Dates: start: 20151211, end: 20161202

REACTIONS (5)
  - Intestinal transit time decreased [Recovering/Resolving]
  - Candida infection [Not Recovered/Not Resolved]
  - Intestinal transit time increased [Recovering/Resolving]
  - Tinea versicolour [Not Recovered/Not Resolved]
  - Weight decreased [Recovering/Resolving]

NARRATIVE: CASE EVENT DATE: 2016
